FAERS Safety Report 16350569 (Version 1)
Quarter: 2019Q2

REPORT INFORMATION
  Report Type: Report from Study
  Country: GB (occurrence: GB)
  Receive Date: 20190524
  Receipt Date: 20190524
  Transmission Date: 20190711
  Serious: Yes (Other)
  Sender: FDA-Public Use
  Company Number: GB-TEVA-2019-GB-1055046

PATIENT
  Sex: Female

DRUGS (5)
  1. VITAMIN D [Concomitant]
     Active Substance: VITAMIN D NOS
  2. TRAMADOL. [Concomitant]
     Active Substance: TRAMADOL
  3. COPAXONE [Suspect]
     Active Substance: GLATIRAMER ACETATE
     Indication: MULTIPLE SCLEROSIS
     Route: 058
     Dates: start: 20180709
  4. IBUPROFEN GEL [Concomitant]
  5. BACLOFEN. [Concomitant]
     Active Substance: BACLOFEN

REACTIONS (7)
  - Immunodeficiency [Unknown]
  - Swelling [Unknown]
  - Eye disorder [Unknown]
  - General physical condition abnormal [Unknown]
  - Nasal herpes [Unknown]
  - Diarrhoea [Unknown]
  - Menopausal symptoms [Unknown]
